FAERS Safety Report 5203591-6 (Version None)
Quarter: 2007Q1

REPORT INFORMATION
  Report Type: 
  Country: None (occurrence: None)
  Receive Date: 20070110
  Receipt Date: 20061229
  Transmission Date: 20070707
  Serious: Yes (Hospitalization)
  Sender: FDA-Public Use
  Company Number: US-AMGEN-US205772

PATIENT
  Sex: Female

DRUGS (10)
  1. PROCRIT [Suspect]
     Indication: MYELODYSPLASTIC SYNDROME
     Dates: start: 20050701
  2. PRILOSEC [Concomitant]
  3. VITAMIN B COMPLEX CAP [Concomitant]
     Route: 048
  4. ASPIRIN [Concomitant]
     Route: 048
  5. MIACALCIN [Concomitant]
  6. CALTRATE [Concomitant]
  7. IRON [Concomitant]
     Route: 048
  8. ASTELIN [Concomitant]
  9. TYLENOL [Concomitant]
  10. METAMUCIL [Concomitant]

REACTIONS (3)
  - FATIGUE [None]
  - HAEMATOCRIT DECREASED [None]
  - KNEE ARTHROPLASTY [None]
